FAERS Safety Report 4418311-2 (Version None)
Quarter: 2004Q3

REPORT INFORMATION
  Report Type: 
  Country: None (occurrence: None)
  Receive Date: 20040809
  Receipt Date: 20040205
  Transmission Date: 20050211
  Serious: No
  Sender: FDA-Public Use
  Company Number: US-GLAXOSMITHKLINE-A0496764A

PATIENT
  Age: 45 Year
  Sex: Male

DRUGS (6)
  1. PAXIL CR [Suspect]
     Indication: DEPRESSION
     Dosage: 37.5MG PER DAY
     Route: 048
     Dates: start: 20030501
  2. STRATTERA [Concomitant]
  3. NEURONTIN [Concomitant]
  4. NEXIUM [Concomitant]
  5. GEODON [Concomitant]
  6. CLONAZEPAM [Concomitant]

REACTIONS (4)
  - ABNORMAL DREAMS [None]
  - BALANCE DISORDER [None]
  - DIZZINESS [None]
  - SLEEP DISORDER [None]
